FAERS Safety Report 11364008 (Version 1)
Quarter: 2015Q3

REPORT INFORMATION
  Report Type: Spontaneous
  Country: IN (occurrence: IN)
  Receive Date: 20150811
  Receipt Date: 20150811
  Transmission Date: 20151125
  Serious: Yes (Hospitalization, Other)
  Sender: FDA-Public Use
  Company Number: IN-MYLANLABS-2015M1027365

PATIENT

DRUGS (8)
  1. ARISTOZYME                         /03174101/ [Concomitant]
     Indication: DYSPEPSIA
     Dosage: UNK UNK, QD
     Route: 048
     Dates: start: 20150125
  2. ASPIRIN                            /00002701/ [Concomitant]
     Active Substance: ASPIRIN
     Indication: PRODUCT USED FOR UNKNOWN INDICATION
  3. UDILIV [Concomitant]
     Indication: JAUNDICE
     Dosage: 300 MG, BID
     Route: 048
     Dates: start: 20150125
  4. HERTRAZ [Suspect]
     Active Substance: TRASTUZUMAB
     Indication: BREAST CANCER
     Dosage: 110 MG, 3XW
     Route: 042
     Dates: start: 20150210
  5. PACLITAXEL. [Suspect]
     Active Substance: PACLITAXEL
     Indication: BREAST CANCER
     Dosage: 100 MG, 3XW
     Route: 042
     Dates: start: 20150210
  6. HAEM UP                            /00023548/ [Concomitant]
     Indication: ANAEMIA
     Dosage: UNK, BID
     Route: 048
     Dates: start: 20150125
  7. A TO Z [Concomitant]
     Indication: VITAMIN SUPPLEMENTATION
     Dosage: UNK, QD
     Route: 048
     Dates: start: 20150125
  8. HEPTRAL                            /00882301/ [Concomitant]
     Indication: LIVER DISORDER
     Dosage: 400 MG, QD
     Route: 048
     Dates: start: 20150125

REACTIONS (9)
  - Pneumonia [Unknown]
  - Lung infection [Unknown]
  - Blood sodium decreased [Unknown]
  - Blood potassium decreased [Unknown]
  - White blood cell count increased [Unknown]
  - Blood calcium increased [Unknown]
  - Intracardiac thrombus [Unknown]
  - Alopecia [Not Recovered/Not Resolved]
  - Feeding disorder [Not Recovered/Not Resolved]

NARRATIVE: CASE EVENT DATE: 201502
